FAERS Safety Report 15735824 (Version 1)
Quarter: 2018Q4

REPORT INFORMATION
  Report Type: Spontaneous
  Country: GB (occurrence: GB)
  Receive Date: 20181218
  Receipt Date: 20181218
  Transmission Date: 20190205
  Serious: Yes (Other)
  Sender: FDA-Public Use
  Company Number: GB-TEVA-209314ISR

PATIENT
  Age: 62 Year
  Sex: Male
  Weight: 102.6 kg

DRUGS (1)
  1. OXALIPLATIN. [Suspect]
     Active Substance: OXALIPLATIN
     Indication: CHEMOTHERAPY

REACTIONS (3)
  - Swelling [Unknown]
  - Paraesthesia [Unknown]
  - Extravasation [Unknown]

NARRATIVE: CASE EVENT DATE: 20090820
